FAERS Safety Report 6540936-9 (Version None)
Quarter: 2010Q1

REPORT INFORMATION
  Report Type: 
  Country: None (occurrence: None)
  Receive Date: 20100118
  Receipt Date: 20091202
  Transmission Date: 20100710
  Serious: No
  Sender: FDA-Public Use
  Company Number: US-BAYER-200937713NA

PATIENT
  Age: 32 Year
  Sex: Female
  Weight: 87 kg

DRUGS (2)
  1. MIRENA [Suspect]
     Indication: CONTRACEPTION
     Dosage: CONTINUOUS DELIVERY
     Route: 015
     Dates: start: 20091125, end: 20091202
  2. MIRENA [Suspect]
     Dosage: CONTINUOUS
     Route: 015
     Dates: start: 20090713, end: 20091027

REACTIONS (5)
  - DEVICE EXPULSION [None]
  - MEDICAL DEVICE COMPLICATION [None]
  - MEDICAL DEVICE PAIN [None]
  - MENORRHAGIA [None]
  - VAGINAL HAEMORRHAGE [None]
